FAERS Safety Report 7629886-4 (Version None)
Quarter: 2011Q3

REPORT INFORMATION
  Report Type: 
  Country: None (occurrence: None)
  Receive Date: 20110722
  Receipt Date: 20110712
  Transmission Date: 20111222
  Serious: Yes (Other)
  Sender: FDA-Public Use
  Company Number: US-JNJFOC-20110609959

PATIENT
  Sex: Male
  Weight: 90.72 kg

DRUGS (3)
  1. UNKNOWN MEDICATION [Concomitant]
     Indication: HYPERTENSION
     Route: 048
  2. REMICADE [Suspect]
     Indication: PSORIATIC ARTHROPATHY
     Route: 042
     Dates: start: 20030101, end: 20101201
  3. NEXIUM [Concomitant]
     Indication: GASTROOESOPHAGEAL REFLUX DISEASE
     Route: 048

REACTIONS (11)
  - MUSCULOSKELETAL PAIN [None]
  - HYPOKINESIA [None]
  - ASTHENIA [None]
  - FATIGUE [None]
  - WALKING AID USER [None]
  - INTERVERTEBRAL DISC DISPLACEMENT [None]
  - NAUSEA [None]
  - RASH ERYTHEMATOUS [None]
  - PAIN IN EXTREMITY [None]
  - FACE OEDEMA [None]
  - OEDEMA PERIPHERAL [None]
